FAERS Safety Report 16373479 (Version 2)
Quarter: 2019Q2

REPORT INFORMATION
  Report Type: Report from Study
  Country: US (occurrence: US)
  Receive Date: 20190530
  Receipt Date: 20190613
  Transmission Date: 20190711
  Serious: No
  Sender: FDA-Public Use
  Company Number: US-SA-2019SA145169

PATIENT
  Age: 64 Year
  Sex: Female

DRUGS (9)
  1. DUPILUMAB [Suspect]
     Active Substance: DUPILUMAB
     Indication: DERMATITIS ATOPIC
     Dosage: 600 MG, 1X
     Route: 058
     Dates: start: 20190508, end: 20190508
  2. AMLODIPINE [Concomitant]
     Active Substance: AMLODIPINE BESYLATE
  3. CYANOCOBALAMIN;CYPROHEPTADINE HYDROCHLORIDE;DEXPANTHENOL;IRON;NICOTINA [Concomitant]
     Dosage: UNK
  4. FEROSUL [Concomitant]
  5. HYDROCODONE BITARTRATE AND ACETAMINOPHEN [Concomitant]
     Active Substance: ACETAMINOPHEN\HYDROCODONE BITARTRATE
  6. DUPILUMAB [Suspect]
     Active Substance: DUPILUMAB
     Indication: ECZEMA
     Dosage: 300 MG, QOW
     Route: 058
  7. LYRICA [Concomitant]
     Active Substance: PREGABALIN
  8. ZOLPIDEM [Concomitant]
     Active Substance: ZOLPIDEM\ZOLPIDEM TARTRATE
  9. TACROLIMUS. [Concomitant]
     Active Substance: TACROLIMUS

REACTIONS (8)
  - Injection site pain [Unknown]
  - Lip discolouration [Unknown]
  - Rash [Not Recovered/Not Resolved]
  - Rash [Not Recovered/Not Resolved]
  - Dermatitis atopic [Not Recovered/Not Resolved]
  - Pain [Not Recovered/Not Resolved]
  - Miliaria [Not Recovered/Not Resolved]
  - Pruritus [Unknown]

NARRATIVE: CASE EVENT DATE: 201905
